FAERS Safety Report 18118258 (Version 1)
Quarter: 2020Q3

REPORT INFORMATION
  Report Type: Report from Study
  Country: FR (occurrence: FR)
  Receive Date: 20200806
  Receipt Date: 20200806
  Transmission Date: 20201103
  Serious: Yes (Hospitalization)
  Sender: FDA-Public Use
  Company Number: FR-ROCHE-2652930

PATIENT
  Age: 76 Year
  Sex: Male
  Weight: 109 kg

DRUGS (10)
  1. LEVOTHYROX [Concomitant]
     Active Substance: LEVOTHYROXINE
  2. INNOHEP [Concomitant]
     Active Substance: TINZAPARIN SODIUM
  3. COLCHICIN [Concomitant]
     Active Substance: COLCHICINE
  4. ARIXTRA [Concomitant]
     Active Substance: FONDAPARINUX SODIUM
  5. ENTRESTO [Concomitant]
     Active Substance: SACUBITRIL\VALSARTAN
  6. POTASSIUM CANRENOATE [Concomitant]
     Active Substance: CANRENOATE POTASSIUM
  7. ATEZOLIZUMAB. [Suspect]
     Active Substance: ATEZOLIZUMAB
     Indication: HEPATOCELLULAR CARCINOMA
     Dosage: 23/MAR/2020 MOST RECENT DOSE OF ATEZOLIZUMAB PRIOR TO THE ONSET OF THE EVENT.?ON 26/JUL/2020, MOST R
     Route: 041
     Dates: start: 20191206, end: 20200415
  8. ATEZOLIZUMAB. [Suspect]
     Active Substance: ATEZOLIZUMAB
     Route: 041
     Dates: start: 20200504
  9. XL184 [Suspect]
     Active Substance: CABOZANTINIB
     Indication: HEPATOCELLULAR CARCINOMA
     Dosage: 11/APR/2020, RECEIVED MOST RECENT DOSE OF CABOZANTINIB PRIOR TO THE ONSET OF THE EVENT.?ON 26/JUL/20
     Route: 048
     Dates: start: 20191206, end: 20200415
  10. FUROSEMIDE. [Concomitant]
     Active Substance: FUROSEMIDE

REACTIONS (2)
  - Acute kidney injury [Recovered/Resolved]
  - Acute kidney injury [Not Recovered/Not Resolved]

NARRATIVE: CASE EVENT DATE: 20200411
